FAERS Safety Report 5234661-4 (Version None)
Quarter: 2007Q1

REPORT INFORMATION
  Report Type: 
  Country: None (occurrence: None)
  Receive Date: 20070209
  Receipt Date: 20070130
  Transmission Date: 20070707
  Serious: Yes (Death, Hospitalization)
  Sender: FDA-Public Use
  Company Number: FR-ELI_LILLY_AND_COMPANY-FR200612002599

PATIENT
  Age: 80 Year
  Sex: Male

DRUGS (9)
  1. ALIMTA [Suspect]
     Indication: NON-SMALL CELL LUNG CANCER RECURRENT
     Dosage: 1000 MG, OTHER
     Route: 042
     Dates: start: 20061207, end: 20061207
  2. SPECIAFOLDINE [Concomitant]
     Route: 048
     Dates: start: 20061201
  3. VITAMIN B-12 [Concomitant]
     Indication: SUPPLEMENTATION THERAPY
     Dosage: UNK, OTHER
     Route: 030
     Dates: start: 20061201
  4. DEXAMETHASONE TAB [Concomitant]
     Indication: PROPHYLAXIS
     Dosage: 4 MG, 2/D
     Route: 048
     Dates: start: 20061201
  5. PERINDOPRIL ERBUMINE [Concomitant]
     Indication: HYPERTENSION
     Dosage: 2 MG, DAILY (1/D)
     Route: 048
     Dates: end: 20061212
  6. PLAVIX [Concomitant]
     Indication: PROPHYLAXIS
     Dosage: 75 MG, DAILY (1/D)
     Route: 048
  7. TAHOR [Concomitant]
     Indication: HYPERLIPIDAEMIA
     Dosage: 40 MG, DAILY (1/D)
     Route: 048
  8. SYMBICORT [Concomitant]
     Indication: BRONCHITIS CHRONIC
     Route: 055
  9. ACETAMINOPHEN [Concomitant]
     Indication: PAIN
     Dosage: 3 D/F, DAILY (1/D)
     Route: 048

REACTIONS (6)
  - DEATH [None]
  - FATIGUE [None]
  - MUSCULAR WEAKNESS [None]
  - NEUTROPHIL COUNT INCREASED [None]
  - PERFORMANCE STATUS DECREASED [None]
  - WHITE BLOOD CELL COUNT INCREASED [None]
